FAERS Safety Report 11293864 (Version 1)
Quarter: 2015Q3

REPORT INFORMATION
  Report Type: Spontaneous
  Country: JP (occurrence: JP)
  Receive Date: 20150722
  Receipt Date: 20150722
  Transmission Date: 20151125
  Serious: Yes (Other)
  Sender: FDA-Public Use
  Company Number: JP-WATSON-2015-11520

PATIENT
  Age: 33 Year
  Sex: Male

DRUGS (6)
  1. OMEPRAZOLE (UNKNOWN) [Suspect]
     Active Substance: OMEPRAZOLE
     Indication: PRODUCT USED FOR UNKNOWN INDICATION
     Dosage: UNK
     Route: 065
  2. DICLOFENAC [Concomitant]
     Active Substance: DICLOFENAC
     Indication: PRODUCT USED FOR UNKNOWN INDICATION
     Dosage: UNK
     Route: 065
  3. PREGABALIN (UNKNOWN) [Suspect]
     Active Substance: PREGABALIN
     Dosage: 150 MG, DAILY
     Route: 065
  4. QUAZEPAM. [Concomitant]
     Active Substance: QUAZEPAM
     Indication: PRODUCT USED FOR UNKNOWN INDICATION
     Dosage: UNK
     Route: 065
  5. PREGABALIN (UNKNOWN) [Suspect]
     Active Substance: PREGABALIN
     Indication: NEURALGIA
     Dosage: 600 MG, DAILY
     Route: 065
  6. OLOPATADINE [Concomitant]
     Active Substance: OLOPATADINE
     Indication: PRODUCT USED FOR UNKNOWN INDICATION
     Dosage: UNK
     Route: 065

REACTIONS (3)
  - Agranulocytosis [Recovered/Resolved]
  - Clostridium difficile infection [Recovered/Resolved]
  - Neutropenia [Recovered/Resolved]
